FAERS Safety Report 25538548 (Version 1)
Quarter: 2025Q3

REPORT INFORMATION
  Report Type: Spontaneous
  Country: IN (occurrence: IN)
  Receive Date: 20250710
  Receipt Date: 20250710
  Transmission Date: 20251020
  Serious: Yes (Other)
  Sender: AMGEN
  Company Number: IN-AMGEN-INDSP2025132102

PATIENT
  Age: 58 Year
  Sex: Female

DRUGS (9)
  1. FILGRASTIM [Suspect]
     Active Substance: FILGRASTIM
     Indication: Febrile neutropenia
     Dosage: 300 MICROGRAM, QD
     Route: 058
  2. OXYGEN [Suspect]
     Active Substance: OXYGEN
     Indication: Supportive care
     Route: 065
  3. ADRIAMYCIN [Concomitant]
     Active Substance: DOXORUBICIN HYDROCHLORIDE
  4. CYCLOPHOSPHAMIDE [Concomitant]
     Active Substance: CYCLOPHOSPHAMIDE
  5. PACLITAXEL [Concomitant]
     Active Substance: PACLITAXEL
     Route: 065
  6. CARBOPLATIN [Concomitant]
     Active Substance: CARBOPLATIN
     Route: 065
  7. MEROPENEM [Concomitant]
     Active Substance: MEROPENEM
     Dosage: 1 GRAM, Q8H AND 2 GRAM, Q8H INCREASED DOSAGE INFUSED OVER 3 H
     Route: 040
  8. NIVOLUMAB [Concomitant]
     Active Substance: NIVOLUMAB
  9. COTRIMOXAZOLE [Concomitant]
     Active Substance: SULFAMETHOXAZOLE\TRIMETHOPRIM
     Dosage: 2 DOSAGE FORM, BID
     Route: 048

REACTIONS (3)
  - Arthritis bacterial [Unknown]
  - Leukopenia [Recovering/Resolving]
  - Therapeutic product effect decreased [Unknown]
